FAERS Safety Report 8435132-4 (Version None)
Quarter: 2012Q2

REPORT INFORMATION
  Report Type: 
  Country: None (occurrence: None)
  Receive Date: 20120614
  Receipt Date: 20120611
  Transmission Date: 20120825
  Serious: Yes (Other)
  Sender: FDA-Public Use
  Company Number: PHEH2012US011848

PATIENT
  Sex: Male

DRUGS (7)
  1. AREDIA [Suspect]
     Indication: BONE LESION
  2. VINCRISTINE SULFATE [Concomitant]
     Dosage: 0.7 MG
  3. AREDIA [Suspect]
     Indication: HYPERCALCAEMIA
  4. DECADRON [Concomitant]
     Dosage: 4 MG
  5. ADRIAMYCIN PFS [Concomitant]
     Dosage: 16 MG
  6. PRILOSEC [Concomitant]
     Dosage: 20 G, QD
  7. BIAXIN [Concomitant]
     Dosage: 500 MG, TID

REACTIONS (8)
  - DIABETES MELLITUS [None]
  - SPINAL OSTEOARTHRITIS [None]
  - DUODENAL ULCER [None]
  - MULTIPLE MYELOMA [None]
  - ORAL CANDIDIASIS [None]
  - PATHOLOGICAL FRACTURE [None]
  - METASTASES TO BONE [None]
  - HAEMORRHOIDS [None]
